FAERS Safety Report 19820940 (Version 1)
Quarter: 2021Q3

REPORT INFORMATION
  Report Type: Spontaneous
  Country: US (occurrence: US)
  Receive Date: 20210909
  Receipt Date: 20210909
  Transmission Date: 20211014
  Serious: Yes (Other)
  Sender: FDA-Public Use
  Company Number: None

PATIENT
  Age: 78 Year
  Sex: Male
  Weight: 80.74 kg

DRUGS (30)
  1. CIPROFLOXACIN OPHTHALMIC SOLUTION 0.3% 10ML?EYE [Suspect]
     Active Substance: CIPROFLOXACIN
     Indication: OTITIS EXTERNA
     Dosage: ?          QUANTITY:3 DF DOSAGE FORM;?
     Dates: start: 20200724, end: 20200729
  2. VITAMINS [Concomitant]
     Active Substance: VITAMINS
  3. VITAMIN K2 [Concomitant]
     Active Substance: MENAQUINONE 6
  4. PYCNOGENOL [Concomitant]
     Active Substance: DIETARY SUPPLEMENT
  5. LICORICE. [Concomitant]
     Active Substance: LICORICE
  6. PSEUDOEPHEDRINE HCL [Concomitant]
     Active Substance: PSEUDOEPHEDRINE HYDROCHLORIDE
  7. N?ACETYL?L?CYSTEINE [Concomitant]
     Active Substance: ACETYLCYSTEINE
  8. CHLOROPHYLLIN [Concomitant]
     Active Substance: SODIUM COPPER CHLOROPHYLLIN
  9. VINPOCETINE [Concomitant]
     Active Substance: VINPOCETINE
  10. GLUCOSAMINE SULFATE [Concomitant]
     Active Substance: GLUCOSAMINE SULFATE
  11. ASHWAGANDHA [Concomitant]
     Active Substance: HERBALS
  12. CLOTRIMAZOLE?BETAMETHASONE DIPROPIONATE [Concomitant]
  13. TYLENOL [Concomitant]
     Active Substance: ACETAMINOPHEN
  14. 2KCL AND NT2 COLLAGEN [Concomitant]
  15. DAILY MULTIVITAMIN [Concomitant]
     Active Substance: VITAMINS
  16. ALPHA LIPOIC ACID [Concomitant]
     Active Substance: .ALPHA.-LIPOIC ACID
  17. RAW PROBIOTIC [Concomitant]
  18. VITAMIN C [Concomitant]
     Active Substance: ASCORBIC ACID
  19. ALLICIN GARLIC [Concomitant]
  20. HYDROCODONE/CHLORPHEN ER SUSPENSION [Concomitant]
  21. VITAMIN K1 [Concomitant]
     Active Substance: PHYTONADIONE
  22. IODINE. [Concomitant]
     Active Substance: IODINE
  23. COENZYME Q10 [Concomitant]
     Active Substance: DIETARY SUPPLEMENT\UBIDECARENONE
  24. FISH OIL [Concomitant]
     Active Substance: FISH OIL
  25. CURCUMIN AND TURMERIC [Concomitant]
  26. BETAINE HCL [Concomitant]
  27. MAGNESIUM [Concomitant]
     Active Substance: MAGNESIUM
  28. CHROMIUM PICOLINATE [Concomitant]
     Active Substance: CHROMIUM PICOLINATE
  29. AIRWAY CLEARANCE THERAPY PHILLIPS INCOURAGE SYSTEM FOR LUNGS [Concomitant]
  30. VITAMIN D3 [Concomitant]
     Active Substance: CHOLECALCIFEROL

REACTIONS (4)
  - Dizziness [None]
  - Fatigue [None]
  - Excessive cerumen production [None]
  - Balance disorder [None]

NARRATIVE: CASE EVENT DATE: 20200729
